FAERS Safety Report 9099057 (Version 3)
Quarter: 2013Q2

REPORT INFORMATION
  Report Type: Spontaneous
  Country: US (occurrence: US)
  Receive Date: 20130213
  Receipt Date: 20130420
  Transmission Date: 20140414
  Serious: Yes (Hospitalization)
  Sender: FDA-Public Use
  Company Number: US-B.I. PHARMACEUTICALS,INC./RIDGEFIELD-2013-BI-03526BP

PATIENT
  Age: 48 Year
  Sex: Female
  Weight: 113.85 kg

DRUGS (14)
  1. PRADAXA [Suspect]
     Indication: ANTICOAGULANT THERAPY
     Dosage: 300 MG
     Route: 048
     Dates: start: 20111108, end: 20111221
  2. PRADAXA [Suspect]
     Indication: ATRIAL FIBRILLATION
  3. ASA [Concomitant]
     Indication: ATRIAL FIBRILLATION
     Dosage: 325 MG
     Route: 048
  4. AMIODARONE [Concomitant]
     Indication: ATRIAL FIBRILLATION
     Dosage: 100 MG
     Route: 048
  5. DILTIAZEM HCL [Concomitant]
     Dosage: 240 MG
     Route: 048
  6. FUROSEMIDE [Concomitant]
     Dosage: 80 MG
     Route: 048
  7. CYCLOBENZAPRINE [Concomitant]
     Dosage: 10 MG
     Route: 048
  8. MULTIPLE VITAMINS-MINERALS [Concomitant]
     Route: 048
  9. ABILIFY [Concomitant]
     Dosage: 30 MG
     Route: 048
  10. METFORMIN [Concomitant]
     Dosage: 1000 MG
     Route: 048
  11. INSULIN ASPART [Concomitant]
     Dosage: 44 U
     Route: 058
  12. INSULIN GLARGINE [Concomitant]
     Dosage: 100 U
     Route: 058
  13. OXYCODONE-ACETAMINOPHEN [Concomitant]
     Route: 048
  14. PNEUMOCOCCAL VACCINE [Concomitant]
     Dosage: 0.5 ML
     Route: 030

REACTIONS (4)
  - Anaemia [Unknown]
  - Haematochezia [Recovered/Resolved]
  - Gastrointestinal ulcer [Unknown]
  - Gastrointestinal haemorrhage [Recovered/Resolved]
